FAERS Safety Report 17848759 (Version 1)
Quarter: 2020Q2

REPORT INFORMATION
  Report Type: Report from Study
  Country: EG (occurrence: EG)
  Receive Date: 20200602
  Receipt Date: 20200602
  Transmission Date: 20200714
  Serious: Yes (Death, Hospitalization, Other)
  Sender: FDA-Public Use
  Company Number: NVSC2020EG151061

PATIENT
  Age: 66 Year
  Sex: Male

DRUGS (3)
  1. AMILO [Concomitant]
     Indication: PRODUCT USED FOR UNKNOWN INDICATION
     Route: 065
  2. GLIVEC [Suspect]
     Active Substance: IMATINIB MESYLATE
     Indication: CHRONIC MYELOID LEUKAEMIA
     Dosage: 1 DF, QD
     Route: 048
  3. ASPOCID [Concomitant]
     Active Substance: ASPIRIN
     Indication: PRODUCT USED FOR UNKNOWN INDICATION
     Dosage: 1 DF, QD
     Route: 065

REACTIONS (18)
  - Cyanosis [Recovered/Resolved]
  - Dyspnoea [Recovering/Resolving]
  - Coma [Recovered/Resolved]
  - Nasopharyngitis [Recovering/Resolving]
  - Bronchitis [Recovering/Resolving]
  - Asphyxia [Recovered/Resolved]
  - Cerebrovascular accident [Recovered/Resolved]
  - Loss of consciousness [Recovered/Resolved]
  - Paralysis [Recovered/Resolved]
  - Vomiting [Recovering/Resolving]
  - Sepsis [Fatal]
  - Erythromelalgia [Fatal]
  - Pyrexia [Fatal]
  - Oedema peripheral [Fatal]
  - Haemothorax [Recovered/Resolved]
  - Erythema [Fatal]
  - Fatigue [Fatal]
  - Hyperventilation [Recovering/Resolving]

NARRATIVE: CASE EVENT DATE: 2017
